FAERS Safety Report 6411425-7 (Version None)
Quarter: 2009Q4

REPORT INFORMATION
  Report Type: 
  Country: None (occurrence: None)
  Receive Date: 20091023
  Receipt Date: 20091016
  Transmission Date: 20100525
  Serious: Yes (Hospitalization, Disabling)
  Sender: FDA-Public Use
  Company Number: US-ELI_LILLY_AND_COMPANY-US200910003317

PATIENT
  Sex: Female

DRUGS (5)
  1. HUMALOG MIX 75/25 [Suspect]
     Indication: TYPE 2 DIABETES MELLITUS
     Dosage: 25 U, EACH MORNING
  2. HUMALOG MIX 75/25 [Suspect]
     Dosage: 30 U, EACH EVENING
  3. HUMALOG MIX 75/25 [Suspect]
     Dosage: 25 U, EACH MORNING
  4. HUMALOG MIX 75/25 [Suspect]
     Dosage: 30 U, EACH EVENING
  5. PLAVIX [Concomitant]

REACTIONS (7)
  - ABASIA [None]
  - BLOOD GLUCOSE INCREASED [None]
  - DEVICE MISUSE [None]
  - DRUG DISPENSING ERROR [None]
  - DRUG DOSE OMISSION [None]
  - FALL [None]
  - LOWER LIMB FRACTURE [None]
